FAERS Safety Report 20101684 (Version 1)
Quarter: 2021Q4

REPORT INFORMATION
  Report Type: Spontaneous
  Country: US (occurrence: US)
  Receive Date: 20211123
  Receipt Date: 20211123
  Transmission Date: 20220303
  Serious: Yes (Other)
  Sender: FDA-Public Use
  Company Number: US-AMGEN-USASP2021181374

PATIENT
  Age: 3 Year
  Sex: Female

DRUGS (4)
  1. BEVACIZUMAB [Suspect]
     Active Substance: BEVACIZUMAB
     Indication: Optic glioma
     Dosage: UNK
     Route: 065
  2. CARBOPLATIN [Concomitant]
     Active Substance: CARBOPLATIN
     Indication: Optic glioma
  3. VINCRISTINE [Concomitant]
     Active Substance: VINCRISTINE
     Indication: Optic glioma
  4. VINBLASTINE [Concomitant]
     Active Substance: VINBLASTINE
     Indication: Optic glioma

REACTIONS (2)
  - Astrocytoma, low grade [Recovering/Resolving]
  - Off label use [Unknown]
